FAERS Safety Report 7459306-4 (Version None)
Quarter: 2011Q2

REPORT INFORMATION
  Report Type: 
  Country: None (occurrence: None)
  Receive Date: 20110505
  Receipt Date: 20110502
  Transmission Date: 20111010
  Serious: Yes (Other)
  Sender: FDA-Public Use
  Company Number: US-PFIZER INC-2011030030

PATIENT
  Sex: Female

DRUGS (2)
  1. METRONIDAZOLE [Concomitant]
     Indication: ANTIBIOTIC THERAPY
     Dosage: UNK
     Dates: start: 20080101, end: 20100101
  2. CHANTIX [Suspect]
     Indication: SMOKING CESSATION THERAPY
     Dosage: CONTINUING MONTHLY PACK 1MG
     Dates: start: 20080801, end: 20081101

REACTIONS (2)
  - DEPRESSION [None]
  - ANXIETY [None]
